FAERS Safety Report 5473124-8 (Version None)
Quarter: 2007Q4

REPORT INFORMATION
  Report Type: 
  Country: None (occurrence: None)
  Receive Date: 20071001
  Receipt Date: 20070927
  Transmission Date: 20080405
  Serious: Yes (Other)
  Sender: FDA-Public Use
  Company Number: A0684302A

PATIENT
  Age: 30 Year
  Sex: Female

DRUGS (2)
  1. ALLI [Suspect]
  2. CENTRUM [Concomitant]

REACTIONS (5)
  - DIZZINESS [None]
  - HEADACHE [None]
  - HYPERTENSION [None]
  - OCULAR HYPERAEMIA [None]
  - SYNCOPE [None]
